FAERS Safety Report 8687967 (Version 2)
Quarter: 2013Q2

REPORT INFORMATION
  Report Type: Report from Study
  Country: CN (occurrence: CN)
  Receive Date: 20120727
  Receipt Date: 20130419
  Transmission Date: 20140414
  Serious: Yes (Hospitalization)
  Sender: FDA-Public Use
  Company Number: CN-BRISTOL-MYERS SQUIBB COMPANY-16769606

PATIENT
  Age: 45 Year
  Sex: Male
  Weight: 70 kg

DRUGS (10)
  1. CETUXIMAB [Suspect]
     Indication: COLORECTAL CANCER METASTATIC
     Dosage: INF, RECENT INF ON 3-JUL-2012
     Route: 042
     Dates: start: 20120305, end: 20120703
  2. FOLINIC ACID [Suspect]
     Indication: COLORECTAL CANCER METASTATIC
     Dosage: INF, RECENT INF ON 26-JUN-2012,
     Route: 042
     Dates: start: 20120305, end: 20120627
  3. 5-FLUOROURACIL [Suspect]
     Indication: COLORECTAL CANCER METASTATIC
     Dosage: INF, 724 MG +2172 MG,RECENT INF ON 26-JUN-2012?11912 MG 5MAR-27JUN12
     Route: 042
     Dates: start: 20120305, end: 20120608
  4. OXALIPLATIN [Suspect]
     Indication: COLORECTAL CANCER METASTATIC
     Dosage: INF, RECENT INF ON 26-JUN-2012
     Route: 042
     Dates: start: 20120305, end: 20120626
  5. PANTOPRAZOLE SODIUM [Concomitant]
     Indication: PROPHYLAXIS
     Route: 042
     Dates: start: 20120703
  6. ALPROSTADIL [Concomitant]
     Indication: PROPHYLAXIS
     Route: 042
     Dates: start: 20120703
  7. LENTINAN [Concomitant]
     Indication: IMMUNODEFICIENCY
     Route: 042
     Dates: start: 20120703
  8. ADEMETIONINE [Concomitant]
     Dosage: ADEMETIONINE 1.4-BUTAEDISULFONATE
     Route: 042
     Dates: start: 20120703
  9. CREATINE PHOSPHATE [Concomitant]
     Indication: PROPHYLAXIS
     Route: 042
     Dates: start: 20120703
  10. LOW MOLECULAR WEIGHT HEPARINS [Concomitant]
     Indication: VENOUS THROMBOSIS
     Dosage: 1 DF = 3075 U
     Route: 058
     Dates: start: 20120629, end: 20120706

REACTIONS (4)
  - Jugular vein thrombosis [Recovered/Resolved with Sequelae]
  - Deep vein thrombosis [Recovered/Resolved with Sequelae]
  - Axillary vein thrombosis [Recovered/Resolved with Sequelae]
  - Subclavian vein thrombosis [Recovered/Resolved with Sequelae]
